FAERS Safety Report 7064889-2 (Version None)
Quarter: 2010Q4

REPORT INFORMATION
  Report Type: 
  Country: None (occurrence: None)
  Receive Date: 20101027
  Receipt Date: 20101018
  Transmission Date: 20110411
  Serious: Yes (Death)
  Sender: FDA-Public Use
  Company Number: PE-GILEAD-2010-0032277

PATIENT
  Age: 1 Day
  Sex: Male

DRUGS (3)
  1. VIREAD [Suspect]
     Indication: HIV INFECTION
     Route: 064
     Dates: start: 20050726, end: 20060921
  2. EPIVIR [Concomitant]
     Indication: HIV INFECTION
     Route: 064
     Dates: start: 20050726, end: 20060921
  3. ISENTRESS [Concomitant]
     Indication: HIV INFECTION
     Route: 064
     Dates: start: 20060626, end: 20060921

REACTIONS (1)
  - DEATH NEONATAL [None]
